FAERS Safety Report 18395845 (Version 2)
Quarter: 2020Q4

REPORT INFORMATION
  Report Type: Other
  Country: NZ (occurrence: NZ)
  Receive Date: 20201018
  Receipt Date: 20201127
  Transmission Date: 20210114
  Serious: Yes (Hospitalization)
  Sender: FDA-Public Use
  Company Number: NZ-B.BRAUN MEDICAL INC.-2092893

PATIENT
  Age: 15 Year
  Sex: Male

DRUGS (7)
  1. FLUTICASONE-PROPIONATE [Suspect]
     Active Substance: FLUTICASONE PROPIONATE
     Route: 050
  2. CEFTAZIDIME. [Concomitant]
     Active Substance: CEFTAZIDIME
  3. ITRACONAZOLE. [Suspect]
     Active Substance: ITRACONAZOLE
  4. TOBRAMYCIN. [Concomitant]
     Active Substance: TOBRAMYCIN
  5. DEXTROSE INJECTIONS USP 0264-7510-00 0264-7510-20 [Suspect]
     Active Substance: DEXTROSE
  6. PREDNISONE. [Suspect]
     Active Substance: PREDNISONE
     Route: 048
  7. SALMETEROL/FLUTICASONE-PROPIONATE [Suspect]
     Active Substance: FLUTICASONE PROPIONATE\SALMETEROL XINAFOATE

REACTIONS (1)
  - Hyperglycaemic hyperosmolar nonketotic syndrome [None]
